FAERS Safety Report 8187960-0 (Version None)
Quarter: 2012Q1

REPORT INFORMATION
  Report Type: 
  Country: None (occurrence: None)
  Receive Date: 20120306
  Receipt Date: 20120228
  Transmission Date: 20120608
  Serious: Yes (Other)
  Sender: FDA-Public Use
  Company Number: FR-GLAXOSMITHKLINE-B0785712A

PATIENT
  Age: 5 Year
  Sex: Male
  Weight: 19 kg

DRUGS (2)
  1. LAMOTRIGINE [Suspect]
     Indication: ATONIC SEIZURES
     Dosage: 25MG PER DAY
  2. VALPROATE SODIUM [Concomitant]
     Indication: ATONIC SEIZURES
     Dosage: 400MG PER DAY
     Dates: start: 19950118

REACTIONS (2)
  - MYOCLONUS [None]
  - CONVULSION [None]
